FAERS Safety Report 5245261-4 (Version None)
Quarter: 2007Q1

REPORT INFORMATION
  Report Type: 
  Country: None (occurrence: None)
  Receive Date: 20070223
  Receipt Date: 20070216
  Transmission Date: 20070707
  Serious: Yes (Other)
  Sender: FDA-Public Use
  Company Number: JP-MERCK-0701USA03735

PATIENT
  Age: 71 Year
  Sex: Male

DRUGS (2)
  1. DECADRON [Suspect]
     Route: 048
  2. TAXOTERE [Concomitant]
     Route: 065

REACTIONS (2)
  - BONE MARROW FAILURE [None]
  - PNEUMOCYSTIS JIROVECI PNEUMONIA [None]
